FAERS Safety Report 7585733-0 (Version None)
Quarter: 2011Q3

REPORT INFORMATION
  Report Type: 
  Country: None (occurrence: None)
  Receive Date: 20110701
  Receipt Date: 20110629
  Transmission Date: 20111222
  Serious: Yes (Death)
  Sender: FDA-Public Use
  Company Number: US-B.I. PHARMACEUTICALS,INC./RIDGEFIELD-2011-BP-16647BP

PATIENT
  Age: 41 Year
  Sex: Female

DRUGS (1)
  1. COMBIVENT [Suspect]
     Dates: end: 20110415

REACTIONS (1)
  - LYMPHOMA [None]
